FAERS Safety Report 24565550 (Version 1)
Quarter: 2024Q4

REPORT INFORMATION
  Report Type: Spontaneous
  Country: US (occurrence: None)
  Receive Date: 20241029
  Receipt Date: 20241029
  Transmission Date: 20250115
  Serious: Yes (Hospitalization)
  Sender: Public
  Company Number: None

PATIENT
  Age: 84 Year
  Sex: Male
  Weight: 79 kg

DRUGS (2)
  1. CEFEPIME HYDROCHLORIDE [Suspect]
     Active Substance: CEFEPIME HYDROCHLORIDE
     Indication: Sacroiliitis
     Dosage: FREQUENCY : TWICE A DAY;?
     Route: 042
     Dates: start: 20240502, end: 20240610
  2. CEFEPIME HYDROCHLORIDE [Suspect]
     Active Substance: CEFEPIME HYDROCHLORIDE
     Indication: Pseudomonas infection

REACTIONS (8)
  - Tubulointerstitial nephritis [None]
  - Diarrhoea [None]
  - Pruritus [None]
  - Vomiting [None]
  - Asthenia [None]
  - Decreased appetite [None]
  - Dialysis [None]
  - Encephalopathy [None]

NARRATIVE: CASE EVENT DATE: 20240611
